FAERS Safety Report 4649147-5 (Version None)
Quarter: 2005Q2

REPORT INFORMATION
  Report Type: 
  Country: None (occurrence: None)
  Receive Date: 20050429
  Receipt Date: 20050425
  Transmission Date: 20051028
  Serious: Yes (Hospitalization)
  Sender: FDA-Public Use
  Company Number: 140100

PATIENT
  Age: 80 Year
  Sex: Female
  Weight: 73 kg

DRUGS (7)
  1. AUGMENTIN '125' [Suspect]
     Indication: INFECTION
     Route: 048
     Dates: start: 20050201
  2. MARCUMAR [Suspect]
     Route: 048
  3. TIAPRIDE HYDROCHLORIDE [Concomitant]
     Route: 048
  4. NEXIUM [Concomitant]
     Dosage: 40MG PER DAY
     Route: 065
  5. LEPONEX [Concomitant]
     Dosage: 150MG PER DAY
     Route: 048
  6. EUTHYROX [Concomitant]
     Dosage: 100UG PER DAY
     Route: 048
  7. MOVICOL [Concomitant]
     Route: 048

REACTIONS (1)
  - DRUG INTERACTION [None]
